FAERS Safety Report 11289587 (Version 1)
Quarter: 2015Q3

REPORT INFORMATION
  Report Type: Spontaneous
  Country: CA (occurrence: CA)
  Receive Date: 20150721
  Receipt Date: 20150721
  Transmission Date: 20151125
  Serious: Yes (Other)
  Sender: FDA-Public Use
  Company Number: CA-TEVA-579821USA

PATIENT
  Age: 57 Year
  Sex: Female

DRUGS (1)
  1. TEVA-SALBUTAMOL [Suspect]
     Active Substance: ALBUTEROL
     Indication: DYSPNOEA
     Dates: start: 201407, end: 20150609

REACTIONS (6)
  - Product substitution issue [Recovering/Resolving]
  - Salivary hypersecretion [Recovering/Resolving]
  - Pulmonary congestion [Recovering/Resolving]
  - Pulmonary oedema [Recovering/Resolving]
  - Adverse event [Recovering/Resolving]
  - Drug ineffective [Recovering/Resolving]
